FAERS Safety Report 14085359 (Version 2)
Quarter: 2017Q4

REPORT INFORMATION
  Report Type: Spontaneous
  Country: US (occurrence: US)
  Receive Date: 20171013
  Receipt Date: 20171207
  Transmission Date: 20180321
  Serious: No
  Sender: FDA-Public Use
  Company Number: US-PFIZER INC-2017411343

PATIENT
  Age: 4 Year
  Sex: Male

DRUGS (9)
  1. RAPAMUNE [Suspect]
     Active Substance: SIROLIMUS
     Indication: GAIT DISTURBANCE
     Dosage: 0.5 MG, TWICE DAILY
     Route: 048
  2. BACTRIM [Concomitant]
     Active Substance: SULFAMETHOXAZOLE\TRIMETHOPRIM
     Dosage: 10 ML, 2X/DAY  (MONDAYS)
     Dates: start: 201505
  3. NOVAFERRUM [Concomitant]
     Active Substance: ASCORBIC ACID\FOLIC ACID\IRON
     Indication: MICROCYTOSIS
     Dosage: 150 MG, DAILY
     Route: 048
     Dates: start: 20160818
  4. OMEGA 3 /01333901/ [Concomitant]
     Active Substance: FISH OIL\TOCOPHEROL
     Indication: LIPIDS INCREASED
     Dosage: 2 CHEWS, DAILY
     Dates: start: 20151016
  5. RAPAMUNE [Suspect]
     Active Substance: SIROLIMUS
     Indication: PAIN
     Dosage: 0.5 MG, DAILY
     Route: 048
     Dates: start: 20150514
  6. RAPAMUNE [Suspect]
     Active Substance: SIROLIMUS
     Indication: COAGULOPATHY
     Dosage: 0.5 MG, DAILY
     Route: 048
  7. BACTRIM [Concomitant]
     Active Substance: SULFAMETHOXAZOLE\TRIMETHOPRIM
     Indication: ANTIFUNGAL PROPHYLAXIS
     Dosage: 80 MG, 2X/DAY (MONDAYS)
     Route: 048
     Dates: start: 20150514
  8. RAPAMUNE [Suspect]
     Active Substance: SIROLIMUS
     Indication: MALFORMATION VENOUS
     Dosage: 0.7 ML, DAILY
     Route: 048
     Dates: start: 20150514
  9. NOVAFERRUM [Concomitant]
     Active Substance: ASCORBIC ACID\FOLIC ACID\IRON
     Indication: MEAN CELL VOLUME
     Dosage: 150 MG, DAILY
     Route: 048
     Dates: start: 201510

REACTIONS (4)
  - Hyperlipidaemia [Not Recovered/Not Resolved]
  - Product use in unapproved indication [Unknown]
  - Drug administered to patient of inappropriate age [Unknown]
  - Mean cell volume decreased [Recovered/Resolved]

NARRATIVE: CASE EVENT DATE: 20150729
